FAERS Safety Report 21834921 (Version 1)
Quarter: 2023Q1

REPORT INFORMATION
  Report Type: Spontaneous
  Country: US (occurrence: US)
  Receive Date: 20230109
  Receipt Date: 20230109
  Transmission Date: 20230418
  Serious: No
  Sender: FDA-Public Use
  Company Number: US-TARO PHARMACEUTICALS USA INC.-2022TAR01222

PATIENT

DRUGS (2)
  1. BUTENAFINE HYDROCHLORIDE [Suspect]
     Active Substance: BUTENAFINE HYDROCHLORIDE
     Indication: Body tinea
     Dosage: UNK, TID
     Route: 061
  2. BUTENAFINE HYDROCHLORIDE [Suspect]
     Active Substance: BUTENAFINE HYDROCHLORIDE
     Indication: Tinea cruris

REACTIONS (1)
  - Drug ineffective [Unknown]
